FAERS Safety Report 13567529 (Version 1)
Quarter: 2017Q2

REPORT INFORMATION
  Report Type: Spontaneous
  Country: US (occurrence: US)
  Receive Date: 20170522
  Receipt Date: 20170522
  Transmission Date: 20170830
  Serious: No
  Sender: FDA-Public Use
  Company Number: US-PFIZER INC-2017221301

PATIENT
  Age: 72 Year
  Sex: Male

DRUGS (1)
  1. TIKOSYN [Suspect]
     Active Substance: DOFETILIDE

REACTIONS (5)
  - Disturbance in attention [Unknown]
  - Condition aggravated [Unknown]
  - Skin exfoliation [Unknown]
  - Dysarthria [Unknown]
  - Malaise [Unknown]
